FAERS Safety Report 14909970 (Version 2)
Quarter: 2018Q2

REPORT INFORMATION
  Report Type: Spontaneous
  Country: JP (occurrence: JP)
  Receive Date: 20180517
  Receipt Date: 20180524
  Transmission Date: 20180711
  Serious: Yes (Other)
  Sender: FDA-Public Use
  Company Number: JP-PFIZER INC-2018186914

PATIENT
  Age: 55 Year
  Sex: Male

DRUGS (3)
  1. BESPONSA [Suspect]
     Active Substance: INOTUZUMAB OZOGAMICIN
     Dosage: 1 MG/BODY PER DAY
     Route: 041
     Dates: start: 20180424
  2. BESPONSA [Suspect]
     Active Substance: INOTUZUMAB OZOGAMICIN
     Dosage: UNK, 4TH DOSE ADMINISTRATION
     Dates: start: 20180518, end: 20180518
  3. BESPONSA [Suspect]
     Active Substance: INOTUZUMAB OZOGAMICIN
     Dosage: UNK, 3RD DOSE ADMINISTRATION
     Dates: start: 20180511, end: 20180511

REACTIONS (3)
  - White blood cell count decreased [Recovered/Resolved]
  - Neoplasm progression [Unknown]
  - Enteritis infectious [Recovered/Resolved]

NARRATIVE: CASE EVENT DATE: 20180430
